FAERS Safety Report 21786370 (Version 1)
Quarter: 2022Q4

REPORT INFORMATION
  Report Type: Other
  Country: PT (occurrence: PT)
  Receive Date: 20221228
  Receipt Date: 20221228
  Transmission Date: 20230113
  Serious: Yes (Other)
  Sender: FDA-Public Use
  Company Number: PT-CELLTRION INC.-2022PT021506

PATIENT

DRUGS (3)
  1. HERZUMA [Suspect]
     Active Substance: TRASTUZUMAB-PKRB
     Indication: Breast cancer
     Dosage: UNK
     Route: 042
     Dates: start: 20220107
  2. DOCETAXEL [Concomitant]
     Active Substance: DOCETAXEL
     Dosage: UNK
     Dates: start: 20220107
  3. CARBOPLATIN [Concomitant]
     Active Substance: CARBOPLATIN
     Dosage: UNK
     Dates: start: 20220107

REACTIONS (4)
  - Nail discolouration [Not Recovered/Not Resolved]
  - Onycholysis [Not Recovered/Not Resolved]
  - Onychomadesis [Not Recovered/Not Resolved]
  - Paronychia [Not Recovered/Not Resolved]

NARRATIVE: CASE EVENT DATE: 20220501
